FAERS Safety Report 23695361 (Version 1)
Quarter: 2024Q2

REPORT INFORMATION
  Report Type: Report from Study
  Country: IL (occurrence: IL)
  Receive Date: 20240402
  Receipt Date: 20240402
  Transmission Date: 20240716
  Serious: Yes (Hospitalization)
  Sender: FDA-Public Use
  Company Number: IL-RECORDATI RARE DISEASES-2024002161

PATIENT

DRUGS (1)
  1. CYSTEAMINE [Suspect]
     Active Substance: CYSTEAMINE
     Indication: Cystinosis
     Dosage: EYE DROPS
     Dates: start: 20201004

REACTIONS (1)
  - Hospitalisation [Unknown]
